FAERS Safety Report 13468352 (Version 1)
Quarter: 2017Q2

REPORT INFORMATION
  Report Type: Spontaneous
  Country: SE (occurrence: SE)
  Receive Date: 20170421
  Receipt Date: 20170421
  Transmission Date: 20170830
  Serious: Yes (Other)
  Sender: FDA-Public Use
  Company Number: SE-TEVA-759834ACC

PATIENT
  Age: 56 Year
  Sex: Female

DRUGS (4)
  1. OXASCAND [Concomitant]
     Active Substance: OXAZEPAM
  2. SIFROL [Concomitant]
     Active Substance: PRAMIPEXOLE
     Dates: start: 2001
  3. MIRTAZAPIN BLUEFISH [Suspect]
     Active Substance: MIRTAZAPINE
     Indication: ANXIETY
     Dosage: 1X30 MG, 2X30 MG (SPRING 2016), 1X45 MG (13 MARCH 2017)
  4. MIRTAZAPINE ACTAVIS [Suspect]
     Active Substance: MIRTAZAPINE
     Indication: ANXIETY
     Dosage: 1X30 MG, 2X30 MG (SPRING 2016), 1X45 MG (13 MARCH 2017)

REACTIONS (5)
  - Dyspnoea [Not Recovered/Not Resolved]
  - Headache [Not Recovered/Not Resolved]
  - Visual impairment [Not Recovered/Not Resolved]
  - Polyneuropathy [Not Recovered/Not Resolved]
  - Withdrawal syndrome [Not Recovered/Not Resolved]

NARRATIVE: CASE EVENT DATE: 2007
